FAERS Safety Report 12613344 (Version 1)
Quarter: 2016Q3

REPORT INFORMATION
  Report Type: Spontaneous
  Country: US (occurrence: None)
  Receive Date: 20160801
  Receipt Date: 20160801
  Transmission Date: 20161109
  Serious: No
  Sender: FDA-Public Use
  Company Number: None

PATIENT
  Sex: Female

DRUGS (1)
  1. 3D CREST WHITE STRIPS P+ G [Suspect]
     Active Substance: HYDROGEN PEROXIDE
     Indication: PRODUCT USED FOR UNKNOWN INDICATION
     Dosage: PUT ON TEET
     Route: 061
     Dates: start: 20160728, end: 20160729

REACTIONS (2)
  - Oral pain [None]
  - Sensitivity of teeth [None]

NARRATIVE: CASE EVENT DATE: 20160728
